FAERS Safety Report 9129363 (Version 2)
Quarter: 2013Q2

REPORT INFORMATION
  Report Type: Report from Study
  Country: CA (occurrence: CA)
  Receive Date: 20130228
  Receipt Date: 20130404
  Transmission Date: 20140414
  Serious: Yes (Other)
  Sender: FDA-Public Use
  Company Number: CA-ROCHE-1193307

PATIENT
  Age: 55 Year
  Sex: Male

DRUGS (9)
  1. PEGASYS [Suspect]
     Indication: HEPATITIS C
     Route: 058
     Dates: start: 20130215
  2. RIBAVIRIN [Suspect]
     Indication: HEPATITIS C
     Route: 048
     Dates: start: 20130215
  3. VITAMIN B12 [Concomitant]
  4. FOLIC ACID [Concomitant]
  5. OMEGA 3 ESSENTIALS (UNK INGREDIENTS) [Concomitant]
  6. INCIVEK [Concomitant]
     Route: 048
  7. CASTOR OIL [Concomitant]
  8. B COMPLEX [Concomitant]
  9. COD LIVER OIL [Concomitant]

REACTIONS (3)
  - Haematochezia [Not Recovered/Not Resolved]
  - Epistaxis [Unknown]
  - Platelet count decreased [Unknown]
